FAERS Safety Report 8894671 (Version 1)
Quarter: 2012Q4

REPORT INFORMATION
  Report Type: 
  Country: US (occurrence: US)
  Receive Date: 20121107
  Receipt Date: 20121107
  Transmission Date: 20130627
  Serious: No
  Sender: FDA-Public Use
  Company Number: US-AMGEN-USASP2011059161

PATIENT
  Age: 75 Year
  Sex: Male

DRUGS (7)
  1. ENBREL [Suspect]
     Indication: PRODUCT USED FOR UNKNOWN INDICATION
     Dosage: 50 mg, qwk
     Route: 058
  2. METHOTREXATE [Concomitant]
     Dosage: 2.5 mg, UNK
  3. ATENOLOL [Concomitant]
     Dosage: 25 mg, UNK
  4. FOLIC ACID [Concomitant]
     Dosage: 1 mg, UNK
  5. GLIPIZIDE [Concomitant]
     Dosage: 10 mg, UNK
  6. PROAIR HFA [Concomitant]
  7. TYLENOL 8 HOUR [Concomitant]
     Dosage: 650 mg, UNK

REACTIONS (1)
  - Nasopharyngitis [Unknown]
